FAERS Safety Report 25215712 (Version 1)
Quarter: 2025Q2

REPORT INFORMATION
  Report Type: Report from Study
  Country: US (occurrence: US)
  Receive Date: 20250418
  Receipt Date: 20250418
  Transmission Date: 20250717
  Serious: No
  Sender: SANDOZ
  Company Number: US-SANDOZ-SDZ2025US023699

PATIENT
  Age: 13 Year
  Sex: Male

DRUGS (2)
  1. OMNITROPE [Suspect]
     Active Substance: SOMATROPIN
     Indication: Product used for unknown indication
     Dosage: 2 MG, QD, STRENGTH: 10 MG
     Route: 058
     Dates: start: 20250227
  2. OMNITROPE [Suspect]
     Active Substance: SOMATROPIN
     Indication: Product used for unknown indication
     Dosage: 2 MG, QD, STRENGTH: 10 MG
     Route: 058
     Dates: start: 20250227

REACTIONS (3)
  - Incorrect dose administered by device [Unknown]
  - Device use error [Unknown]
  - Device leakage [Unknown]

NARRATIVE: CASE EVENT DATE: 20250227
